FAERS Safety Report 23098437 (Version 1)
Quarter: 2023Q4

REPORT INFORMATION
  Report Type: Spontaneous
  Country: FR (occurrence: FR)
  Receive Date: 20231023
  Receipt Date: 20231023
  Transmission Date: 20240109
  Serious: Yes (Disabling)
  Sender: FDA-Public Use
  Company Number: FR-PFIZER INC-202300333362

PATIENT
  Age: 28 Year
  Sex: Female

DRUGS (1)
  1. PAXLOVID [Suspect]
     Active Substance: NIRMATRELVIR\RITONAVIR
     Indication: COVID-19
     Route: 048

REACTIONS (5)
  - Abdominal pain upper [Not Recovered/Not Resolved]
  - Stomatitis [Not Recovered/Not Resolved]
  - Dysgeusia [Not Recovered/Not Resolved]
  - Toothache [Not Recovered/Not Resolved]
  - Gastric ulcer [Not Recovered/Not Resolved]
